FAERS Safety Report 7894125-6 (Version None)
Quarter: 2011Q4

REPORT INFORMATION
  Report Type: 
  Country: None (occurrence: None)
  Receive Date: 20111104
  Receipt Date: 20111031
  Transmission Date: 20120403
  Serious: No
  Sender: FDA-Public Use
  Company Number: US-PFIZER INC-2011266426

PATIENT
  Sex: Female
  Weight: 83.9 kg

DRUGS (2)
  1. ARTHROTEC [Suspect]
     Indication: INFLAMMATION
     Dosage: 200MCG/75MG 2XDAY
     Route: 048
     Dates: start: 20111029, end: 20111031
  2. ATENOLOL [Concomitant]
     Indication: HYPERTENSION
     Dosage: 100 MG, 1X/DAY

REACTIONS (2)
  - MUSCLE SPASMS [None]
  - MYALGIA [None]
